FAERS Safety Report 8287320-8 (Version None)
Quarter: 2012Q2

REPORT INFORMATION
  Report Type: 
  Country: None (occurrence: None)
  Receive Date: 20120416
  Receipt Date: 20120416
  Transmission Date: 20120825
  Serious: Yes (Life-Threatening, Hospitalization)
  Sender: FDA-Public Use
  Company Number: None

PATIENT
  Age: 68 Year
  Sex: Male
  Weight: 131.54 kg

DRUGS (1)
  1. PRADAXA [Suspect]
     Indication: ATRIAL FIBRILLATION
     Dosage: 150
     Route: 048
     Dates: start: 20110521, end: 20110804

REACTIONS (4)
  - POSTOPERATIVE FEVER [None]
  - SPLENIC RUPTURE [None]
  - BABESIOSIS [None]
  - HAEMORRHAGE [None]
